FAERS Safety Report 8115300-1 (Version None)
Quarter: 2012Q1

REPORT INFORMATION
  Report Type: 
  Country: None (occurrence: None)
  Receive Date: 20120206
  Receipt Date: 20120125
  Transmission Date: 20120608
  Serious: Yes (Other)
  Sender: FDA-Public Use
  Company Number: US-JNJFOC-20110810471

PATIENT
  Sex: Male
  Weight: 79.38 kg

DRUGS (2)
  1. MESALAMINE [Concomitant]
     Indication: CROHN'S DISEASE
  2. INFLIXIMAB, RECOMBINANT [Suspect]
     Indication: CROHN'S DISEASE
     Dosage: 25 INFUSIONS
     Route: 042
     Dates: start: 20020711, end: 20070703

REACTIONS (1)
  - BASAL CELL CARCINOMA [None]
